FAERS Safety Report 24098224 (Version 3)
Quarter: 2024Q4

REPORT INFORMATION
  Report Type: Report from Study
  Country: FI (occurrence: FI)
  Receive Date: 20240716
  Receipt Date: 20241021
  Transmission Date: 20250114
  Serious: Yes (Hospitalization, Other)
  Sender: MYLAN
  Company Number: FI-MYLANLABS-2016M1057432

PATIENT
  Age: 37 Year
  Sex: Male

DRUGS (10)
  1. CLOZAPINE [Suspect]
     Active Substance: CLOZAPINE
     Indication: Schizoaffective disorder
     Dosage: UNK
     Route: 065
     Dates: start: 20120104, end: 20160728
  2. CLOZAPINE [Suspect]
     Active Substance: CLOZAPINE
     Dosage: (300 MG ONCE PER DAY DURING THE DETECTION OF NEUTROPENIA, THE DOSE WAS ATTEMPTED TO BE DECREASED
     Route: 065
     Dates: start: 20160908, end: 20161216
  3. CLOZAPINE [Suspect]
     Active Substance: CLOZAPINE
     Dosage: UNK
     Route: 065
     Dates: start: 20170112, end: 20220816
  4. BISOPROLOL [Concomitant]
     Active Substance: BISOPROLOL\BISOPROLOL FUMARATE
     Indication: Product used for unknown indication
     Dosage: UNK
     Route: 065
  5. VALPROIC ACID [Concomitant]
     Active Substance: VALPROIC ACID
     Indication: Product used for unknown indication
     Dosage: UNK
     Route: 065
  6. ADURSAL [Concomitant]
     Indication: Product used for unknown indication
     Dosage: UNK
     Route: 065
  7. Temesta [Concomitant]
     Indication: Product used for unknown indication
     Dosage: UNK
     Route: 065
  8. Tenox [Concomitant]
     Indication: Product used for unknown indication
     Dosage: UNK
     Route: 065
  9. PANTOPRAZOLE SODIUM [Concomitant]
     Active Substance: PANTOPRAZOLE SODIUM
     Indication: Product used for unknown indication
     Dosage: UNK
     Route: 065
  10. PREDNISOLONE [Concomitant]
     Active Substance: PREDNISOLONE
     Indication: Autoimmune hepatitis
     Dosage: UNK
     Route: 065
     Dates: start: 2006

REACTIONS (6)
  - Aggression [Recovered/Resolved]
  - Psychotic disorder [Unknown]
  - Mental impairment [Unknown]
  - Neutropenia [Recovered/Resolved]
  - Off label use [Not Recovered/Not Resolved]
  - Intentional product misuse [Recovered/Resolved]

NARRATIVE: CASE EVENT DATE: 20120104
